FAERS Safety Report 14627947 (Version 2)
Quarter: 2018Q1

REPORT INFORMATION
  Report Type: Report from Study
  Country: US (occurrence: US)
  Receive Date: 20180312
  Receipt Date: 20180326
  Transmission Date: 20180509
  Serious: Yes (Death, Hospitalization)
  Sender: FDA-Public Use
  Company Number: US-ACTELION-A-US2018-168652

PATIENT
  Age: 76 Year
  Sex: Male
  Weight: 76.64 kg

DRUGS (3)
  1. OPSUMIT [Suspect]
     Active Substance: MACITENTAN
     Indication: PULMONARY ARTERIAL HYPERTENSION
     Dosage: 10 MG, QD
     Route: 048
  2. DILTIAZEM. [Concomitant]
     Active Substance: DILTIAZEM
  3. ORENITRAM [Concomitant]
     Active Substance: TREPROSTINIL

REACTIONS (3)
  - Chronic obstructive pulmonary disease [Fatal]
  - Dyspnoea [Unknown]
  - Respiratory failure [Fatal]
